FAERS Safety Report 4411751-7 (Version None)
Quarter: 2004Q3

REPORT INFORMATION
  Report Type: 
  Country: None (occurrence: None)
  Receive Date: 20040729
  Receipt Date: 20040729
  Transmission Date: 20050211
  Serious: Yes (Hospitalization)
  Sender: FDA-Public Use
  Company Number: None

PATIENT
  Age: 75 Year
  Sex: Male
  Weight: 79.3795 kg

DRUGS (5)
  1. LISINOPRIL [Suspect]
     Indication: DIABETES MELLITUS NON-INSULIN-DEPENDENT
     Dosage: 30 MG QD ORAL
     Route: 048
     Dates: start: 20040712, end: 20040727
  2. LISINOPRIL [Suspect]
     Indication: HYPERTENSION
     Dosage: 30 MG QD ORAL
     Route: 048
     Dates: start: 20040712, end: 20040727
  3. NIFEDIPINE [Concomitant]
  4. METFORMIN HCL [Concomitant]
  5. LOVASTATIN [Concomitant]

REACTIONS (6)
  - ARRHYTHMIA [None]
  - ATRIAL FIBRILLATION [None]
  - DIZZINESS [None]
  - FEELING ABNORMAL [None]
  - HYPERHIDROSIS [None]
  - NAUSEA [None]
